FAERS Safety Report 24715960 (Version 1)
Quarter: 2024Q4

REPORT INFORMATION
  Report Type: Spontaneous
  Country: US (occurrence: US)
  Receive Date: 20241210
  Receipt Date: 20241210
  Transmission Date: 20250114
  Serious: Yes (Other)
  Sender: SPECGX
  Company Number: US-SPECGX-T202402324

PATIENT
  Sex: Female

DRUGS (2)
  1. METHADONE [Suspect]
     Active Substance: METHADONE HYDROCHLORIDE
     Indication: Pain
     Dosage: 10 MILLIGRAM, TID (TAKES IT IN THE MORNING, THEN IN THE AFTERNOON AND AFTER THAT AT NIGHT)
     Route: 065
  2. OXYCODONE [Suspect]
     Active Substance: OXYCODONE
     Indication: Pain
     Dosage: 30 MILLIGRAM
     Route: 065

REACTIONS (8)
  - Self-destructive behaviour [Unknown]
  - Neck surgery [Unknown]
  - Suicidal ideation [Unknown]
  - Drug withdrawal syndrome [Unknown]
  - Skin burning sensation [Unknown]
  - Illness [Unknown]
  - Nerve injury [Unknown]
  - Abdominal pain upper [Unknown]
